FAERS Safety Report 6288856-1 (Version None)
Quarter: 2009Q3

REPORT INFORMATION
  Report Type: 
  Country: None (occurrence: None)
  Receive Date: 20090729
  Receipt Date: 20090717
  Transmission Date: 20100115
  Serious: Yes (Other)
  Sender: FDA-Public Use
  Company Number: US-PFIZER INC-2009213959

PATIENT
  Sex: Female

DRUGS (2)
  1. PHENYTOIN AND PHENYTOIN SODIUM [Suspect]
     Indication: EPILEPSY
     Dosage: 400 MG, 1X/DAY
  2. TAMOXIFEN CITRATE [Interacting]
     Indication: BREAST CANCER
     Dosage: UNK

REACTIONS (3)
  - BREAST CANCER [None]
  - DRUG INTERACTION [None]
  - DRUG LEVEL DECREASED [None]
